FAERS Safety Report 21843809 (Version 1)
Quarter: 2023Q1

REPORT INFORMATION
  Report Type: Spontaneous
  Country: US (occurrence: None)
  Receive Date: 20230109
  Receipt Date: 20230109
  Transmission Date: 20230417
  Serious: Yes (Life-Threatening, Hospitalization, Other)
  Sender: FDA-Public Use
  Company Number: None

PATIENT
  Age: 27 Year
  Sex: Female
  Weight: 65 kg

DRUGS (3)
  1. MODAFINIL [Suspect]
     Active Substance: MODAFINIL
     Indication: Narcolepsy
     Dosage: FREQUENCY : DAILY;?
     Dates: start: 20220602, end: 20220615
  2. VRAYLAR [Concomitant]
     Active Substance: CARIPRAZINE
     Dates: start: 20210901
  3. VALIUM [Concomitant]
     Active Substance: DIAZEPAM
     Dates: start: 20220112

REACTIONS (5)
  - Rash [None]
  - Stevens-Johnson syndrome [None]
  - Near death experience [None]
  - Enanthema [None]
  - Respiratory disorder [None]

NARRATIVE: CASE EVENT DATE: 20220615
